FAERS Safety Report 7134423-7 (Version None)
Quarter: 2010Q4

REPORT INFORMATION
  Report Type: 
  Country: None (occurrence: None)
  Receive Date: 20101203
  Receipt Date: 20101129
  Transmission Date: 20110411
  Serious: Yes (Death, Hospitalization, Other)
  Sender: FDA-Public Use
  Company Number: PHHY2010PL22378

PATIENT
  Age: 30 Year
  Sex: Male

DRUGS (2)
  1. IMATINIB [Suspect]
     Indication: CHRONIC MYELOID LEUKAEMIA
     Dosage: 400 MG/DAY
     Dates: start: 20030501
  2. IMATINIB [Suspect]
     Dosage: 300 MG PER DAY

REACTIONS (11)
  - CONFUSIONAL STATE [None]
  - GENERAL PHYSICAL HEALTH DETERIORATION [None]
  - HEADACHE [None]
  - METASTASES TO CENTRAL NERVOUS SYSTEM [None]
  - METASTASES TO LUNG [None]
  - NAUSEA [None]
  - NEOPLASM MALIGNANT [None]
  - ORCHIDECTOMY [None]
  - PANCYTOPENIA [None]
  - SOMNOLENCE [None]
  - TESTICULAR GERM CELL TUMOUR MIXED STAGE I [None]
